FAERS Safety Report 23867926 (Version 2)
Quarter: 2025Q4

REPORT INFORMATION
  Report Type: Report from Study
  Country: EU (occurrence: EU)
  Receive Date: 20240517
  Receipt Date: 20251125
  Transmission Date: 20260117
  Serious: Yes (Hospitalization)
  Sender: SK LIFE SCIENCE
  Company Number: EU-ACRAF SpA-2024-034470

PATIENT

DRUGS (11)
  1. XCOPRI [Suspect]
     Active Substance: CENOBAMATE
     Indication: Temporal lobe epilepsy
     Dosage: 200 MILLIGRAM
     Route: 048
     Dates: start: 20240116, end: 20240502
  2. XCOPRI [Suspect]
     Active Substance: CENOBAMATE
     Dosage: 150 MILLIGRAM
     Route: 048
     Dates: start: 20240502, end: 20240506
  3. XCOPRI [Suspect]
     Active Substance: CENOBAMATE
     Dosage: 100 MILLIGRAM
     Route: 048
     Dates: start: 20240506
  4. XCOPRI [Suspect]
     Active Substance: CENOBAMATE
     Dosage: 9 TABLETS OF CENOBAMATE 200MG + 1 TABLET OF CENOBAMATE 150 MG
     Route: 048
     Dates: start: 20240504, end: 20240504
  5. BRIVARACETAM [Concomitant]
     Active Substance: BRIVARACETAM
     Indication: Temporal lobe epilepsy
     Dosage: 150 MILLIGRAM, QD
     Route: 065
     Dates: start: 20231219
  6. BRIVARACETAM [Concomitant]
     Active Substance: BRIVARACETAM
     Indication: Psychiatric symptom
     Dosage: UNK
     Route: 065
     Dates: start: 20240502
  7. CLOBAZAM [Concomitant]
     Active Substance: CLOBAZAM
     Indication: Temporal lobe epilepsy
     Dosage: 20 MILLIGRAM
     Route: 065
  8. CLOBAZAM [Concomitant]
     Active Substance: CLOBAZAM
     Indication: Psychiatric symptom
     Dosage: UNK
     Route: 065
     Dates: start: 20240502
  9. OLANZAPINE [Concomitant]
     Active Substance: OLANZAPINE
     Indication: Temporal lobe epilepsy
     Dosage: 10 MILLIGRAM
     Route: 065
  10. OLANZAPINE [Concomitant]
     Active Substance: OLANZAPINE
     Indication: Psychiatric symptom
     Dosage: UNK
     Route: 065
     Dates: start: 20240502
  11. DIAZEPAM [Concomitant]
     Active Substance: DIAZEPAM
     Indication: Product used for unknown indication
     Dosage: UNK
     Route: 065

REACTIONS (6)
  - Drug abuse [Recovered/Resolved]
  - Intentional overdose [Recovered/Resolved]
  - Histrionic personality disorder [Unknown]
  - Injury [Unknown]
  - Gait disturbance [Unknown]
  - Dizziness [Recovered/Resolved]

NARRATIVE: CASE EVENT DATE: 20240504
